FAERS Safety Report 9238081 (Version 1)
Quarter: 2013Q1

REPORT INFORMATION
  Report Type: Spontaneous
  Country: US (occurrence: None)
  Receive Date: 20121107
  Receipt Date: 20121107
  Transmission Date: 20140127
  Serious: No
  Sender: FDA-Public Use
  Company Number: 2012HGS-003780

PATIENT
  Age: 60 Year
  Sex: Female
  Weight: 82.56 kg

DRUGS (9)
  1. BENLYSTA [Suspect]
     Indication: SYSTEMIC LUPUS ERYTHEMATOSUS
     Dosage: 1 IN 28 D
     Route: 041
     Dates: start: 20120622
  2. CELEBREX (CELECOXIB) (CELECOXIB) [Concomitant]
  3. ASPIRIN (ACETYLSALICYLIC ACID) (ACETYLSALICYLIC ACID) [Concomitant]
  4. SYNTHROID (LEVOTHYROXINE SODIUM) (LEVOTHYROXINE SODIUM) [Concomitant]
  5. MAXZIDE (DYAZIDE) (HYDROCHLOROTHIAZIDE, TRIAMTERENE) [Concomitant]
  6. PRAVACHOL (PRAVASTATIN SODIUM) (PRAVASTATIN SODIUM) [Concomitant]
  7. TRAMADOL PM (TRAMADOL HYDROCHLORIDE) (TRAMADOL HYDROCHLORIDE) [Concomitant]
  8. CLARITIN (LORATADINE) (LORATADINE) [Concomitant]
  9. FAMOTIDINE (FAMOTIDINE) (FAMOTIDINE) [Concomitant]

REACTIONS (2)
  - Rash [None]
  - Pruritus [None]
